FAERS Safety Report 8030079-X (Version None)
Quarter: 2012Q1

REPORT INFORMATION
  Report Type: 
  Country: None (occurrence: None)
  Receive Date: 20120109
  Receipt Date: 20120106
  Transmission Date: 20120608
  Serious: Yes (Life-Threatening, Hospitalization, Other)
  Sender: FDA-Public Use
  Company Number: DE-JNJFOC-20111202566

PATIENT
  Sex: Male
  Weight: 34.4 kg

DRUGS (3)
  1. CARBAMAZEPINE [Suspect]
     Indication: EPILEPSY
     Route: 048
     Dates: end: 20111101
  2. STRATTERA [Concomitant]
     Indication: MILD MENTAL RETARDATION
     Route: 048
     Dates: start: 20110901, end: 20111201
  3. CONCERTA [Suspect]
     Indication: MILD MENTAL RETARDATION
     Route: 048
     Dates: start: 20110530, end: 20111205

REACTIONS (2)
  - ANAEMIA [None]
  - LEUKOPENIA [None]
